FAERS Safety Report 11030828 (Version 1)
Quarter: 2015Q2

REPORT INFORMATION
  Report Type: Spontaneous
  Country: FR (occurrence: FR)
  Receive Date: 20150415
  Receipt Date: 20150415
  Transmission Date: 20150821
  Serious: Yes (Other)
  Sender: FDA-Public Use
  Company Number: PHHY2015FR044718

PATIENT
  Age: 34 Year
  Sex: Female

DRUGS (1)
  1. PARACETAMOL [Suspect]
     Active Substance: ACETAMINOPHEN
     Indication: BACK PAIN
     Dosage: 1 G, 5 TIMES A DAY
     Route: 065

REACTIONS (8)
  - Skin lesion [Recovered/Resolved]
  - Painful defaecation [Recovered/Resolved]
  - Anorectal disorder [Recovered/Resolved]
  - Gastrointestinal necrosis [Recovered/Resolved]
  - Drug abuse [Unknown]
  - Inflammation [Recovered/Resolved]
  - Rash [Recovered/Resolved]
  - Weight decreased [Recovered/Resolved]
